FAERS Safety Report 22975131 (Version 2)
Quarter: 2023Q4

REPORT INFORMATION
  Report Type: Spontaneous
  Country: US (occurrence: US)
  Receive Date: 20230924
  Receipt Date: 20231109
  Transmission Date: 20240110
  Serious: No
  Sender: FDA-Public Use
  Company Number: US-LUPIN PHARMACEUTICALS INC.-2023-07984

PATIENT

DRUGS (1)
  1. GAVILYTE G [Suspect]
     Active Substance: POLYETHYLENE GLYCOL 3350\POTASSIUM CHLORIDE\SODIUM BICARBONATE\SODIUM CHLORIDE\SODIUM SULFATE
     Indication: Colonoscopy
     Dosage: UNK (1 TIME BY MOUTH)
     Route: 048
     Dates: start: 20230911

REACTIONS (4)
  - Abdominal pain [Recovered/Resolved]
  - Product taste abnormal [Unknown]
  - Product use complaint [Unknown]
  - Wrong technique in product usage process [Unknown]
